FAERS Safety Report 15689505 (Version 1)
Quarter: 2018Q4

REPORT INFORMATION
  Report Type: Spontaneous
  Country: US (occurrence: US)
  Receive Date: 20181204
  Receipt Date: 20181204
  Transmission Date: 20190205
  Serious: Yes (Other)
  Sender: FDA-Public Use
  Company Number: None

PATIENT
  Age: 75 Year
  Sex: Male
  Weight: 99.9 kg

DRUGS (1)
  1. EZETIMIBE 10 MG TABLET GERERIC FOR ZETIA 10 MG TABLET [Suspect]
     Active Substance: EZETIMIBE
     Indication: BLOOD CHOLESTEROL INCREASED
     Dosage: ?          QUANTITY:90 TABLET(S);?
     Route: 048
     Dates: start: 20170915, end: 20181015

REACTIONS (5)
  - Stomatitis [None]
  - Product substitution issue [None]
  - Drug ineffective [None]
  - Aphthous ulcer [None]
  - Myalgia [None]

NARRATIVE: CASE EVENT DATE: 20180115
